FAERS Safety Report 16243564 (Version 3)
Quarter: 2019Q2

REPORT INFORMATION
  Report Type: Report from Study
  Country: CA (occurrence: CA)
  Receive Date: 20190426
  Receipt Date: 20190509
  Transmission Date: 20190711
  Serious: Yes (Other)
  Sender: FDA-Public Use
  Company Number: CA-PFIZER INC-2019172399

PATIENT
  Age: 42 Year
  Sex: Female

DRUGS (13)
  1. PAROXETINE. [Concomitant]
     Active Substance: PAROXETINE
     Dosage: UNK UNK, QD
  2. ALIGN [Concomitant]
     Active Substance: BIFIDOBACTERIUM LONGUM SUBSP. INFANTIS
     Dosage: UNK UNK, QD
  3. OLESTA [Concomitant]
     Dosage: UNK
  4. TECTA [Suspect]
     Active Substance: PANTOPRAZOLE MAGNESIUM
     Dosage: UNK
     Route: 065
  5. FERROMAX [Concomitant]
     Dosage: 300 MILLIGRAM, QD
  6. CITALOPRAM [Concomitant]
     Active Substance: CITALOPRAM HYDROBROMIDE
     Dosage: UNK, QD
  7. VITAMIN B3 [Concomitant]
     Active Substance: NIACIN
     Dosage: UNK
  8. ISONIAZID. [Concomitant]
     Active Substance: ISONIAZID
     Dosage: UNK, QD
  9. IRON [Concomitant]
     Active Substance: IRON
     Dosage: UNK UNK, Q3WEEKS
  10. ENTYVIO [Suspect]
     Active Substance: VEDOLIZUMAB
     Indication: COLITIS ULCERATIVE
     Dosage: 300 MILLIGRAM
     Route: 042
     Dates: start: 20151113
  11. ENTYVIO [Suspect]
     Active Substance: VEDOLIZUMAB
     Dosage: 300 MILLIGRAM, EVERY FOUR WEEKS
     Route: 042
     Dates: start: 20190424
  12. SALOFALK [AMINOSALICYLIC ACID] [Concomitant]
     Active Substance: AMINOSALICYLIC ACID
     Dosage: UNK, QD
  13. GAS-X [Concomitant]
     Active Substance: DIMETHICONE
     Dosage: UNK, BID

REACTIONS (1)
  - Colitis ulcerative [Not Recovered/Not Resolved]

NARRATIVE: CASE EVENT DATE: 2019
